FAERS Safety Report 5000764-2 (Version None)
Quarter: 2006Q2

REPORT INFORMATION
  Report Type: 
  Country: None (occurrence: None)
  Receive Date: 20060512
  Receipt Date: 20060213
  Transmission Date: 20061013
  Serious: Yes (Hospitalization)
  Sender: FDA-Public Use
  Company Number: US-MERCK-0602USA04057

PATIENT
  Age: 76 Year
  Sex: Male
  Weight: 93 kg

DRUGS (7)
  1. VIOXX [Suspect]
     Indication: ARTHRALGIA
     Route: 048
     Dates: start: 20020916, end: 20040228
  2. ANTIVERT [Concomitant]
     Route: 048
  3. LOPID [Concomitant]
     Route: 065
  4. TESSALON [Concomitant]
     Route: 065
  5. VITAMINS (UNSPECIFIED) [Concomitant]
     Route: 065
  6. NIACIN [Concomitant]
     Route: 065
  7. ASCORBIC ACID [Concomitant]
     Route: 065

REACTIONS (5)
  - BLISTER [None]
  - CARDIAC MURMUR [None]
  - CEREBROVASCULAR ACCIDENT [None]
  - HEADACHE [None]
  - URINARY TRACT INFECTION [None]
